FAERS Safety Report 20597512 (Version 2)
Quarter: 2022Q1

REPORT INFORMATION
  Report Type: Report from Study
  Country: US (occurrence: US)
  Receive Date: 20220315
  Receipt Date: 20220318
  Transmission Date: 20220423
  Serious: Yes (Hospitalization)
  Sender: FDA-Public Use
  Company Number: US-TAKEDA-2022TUS017251

PATIENT
  Age: 82 Year
  Sex: Male

DRUGS (10)
  1. IXAZOMIB [Suspect]
     Active Substance: IXAZOMIB
     Indication: Plasma cell myeloma
     Dosage: UNK
     Route: 048
     Dates: start: 20210518
  2. LENALIDOMIDE [Suspect]
     Active Substance: LENALIDOMIDE
     Indication: Plasma cell myeloma
     Dosage: UNK
     Route: 048
     Dates: start: 20210518
  3. DARATUMUMAB [Suspect]
     Active Substance: DARATUMUMAB
     Indication: Plasma cell myeloma
     Dosage: UNK
     Route: 042
     Dates: start: 20210518
  4. DEXAMETHASONE [Suspect]
     Active Substance: DEXAMETHASONE
     Indication: Plasma cell myeloma
     Dosage: UNK
     Route: 048
     Dates: start: 20210518
  5. METHYLPREDNISOLONE [Suspect]
     Active Substance: METHYLPREDNISOLONE
     Indication: Plasma cell myeloma
     Dosage: UNK
     Route: 065
  6. VITAMINS [Concomitant]
     Active Substance: VITAMINS
     Indication: Supplementation therapy
     Dosage: UNK UNK, QD
     Route: 048
     Dates: start: 20110407
  7. METAMUCIL [Concomitant]
     Active Substance: PLANTAGO SEED
     Indication: Supplementation therapy
     Dosage: UNK UNK, QD
     Route: 048
     Dates: start: 20111206
  8. ASIAN GINSENG [Concomitant]
     Active Substance: ASIAN GINSENG
     Indication: Supplementation therapy
     Dosage: UNK UNK, QD
     Route: 048
     Dates: start: 20140703
  9. ACYCLOVIR [Concomitant]
     Active Substance: ACYCLOVIR
     Indication: Herpes zoster
     Dosage: 400 MILLIGRAM, BID
     Route: 048
     Dates: start: 20210518
  10. OMEPRAZOLE [Concomitant]
     Active Substance: OMEPRAZOLE
     Indication: Prophylaxis
     Dosage: 20 MILLIGRAM, BID
     Route: 048
     Dates: start: 20210318

REACTIONS (2)
  - Urinary retention [Recovered/Resolved]
  - Haematuria [Recovered/Resolved]

NARRATIVE: CASE EVENT DATE: 20220311
